FAERS Safety Report 16855959 (Version 1)
Quarter: 2019Q3

REPORT INFORMATION
  Report Type: Spontaneous
  Country: US (occurrence: US)
  Receive Date: 20190926
  Receipt Date: 20190926
  Transmission Date: 20191005
  Serious: No
  Sender: FDA-Public Use
  Company Number: PHEH2019US039683

PATIENT
  Sex: Female

DRUGS (1)
  1. MEKINIST [Suspect]
     Active Substance: TRAMETINIB DIMETHYL SULFOXIDE
     Indication: NEUROFIBROMATOSIS
     Dosage: 2 MG, QD
     Route: 048
     Dates: start: 20190829

REACTIONS (5)
  - Swelling [Unknown]
  - Drug ineffective [Unknown]
  - Gingival bleeding [Unknown]
  - Fatigue [Unknown]
  - Dermatitis acneiform [Unknown]
